FAERS Safety Report 5396881-8 (Version None)
Quarter: 2007Q3

REPORT INFORMATION
  Report Type: 
  Country: None (occurrence: None)
  Receive Date: 20070725
  Receipt Date: 20070711
  Transmission Date: 20080115
  Serious: Yes (Hospitalization)
  Sender: FDA-Public Use
  Company Number: ES-ELI_LILLY_AND_COMPANY-ES200707004217

PATIENT
  Age: 84 Year
  Sex: Female

DRUGS (9)
  1. FORTEO [Suspect]
     Indication: OSTEOPOROSIS
     Dosage: 20 UG, UNKNOWN
     Route: 058
     Dates: start: 20070201
  2. FORTEO [Suspect]
     Dosage: 20 UG, UNKNOWN
     Route: 058
  3. TORSEMIDE [Concomitant]
     Dosage: UNK, UNKNOWN
     Route: 065
  4. DISGREN [Concomitant]
     Dosage: UNK, UNKNOWN
     Route: 065
  5. NITRODUR II [Concomitant]
     Dosage: UNK, UNKNOWN
     Route: 065
  6. PANTECTA [Concomitant]
     Dosage: UNK, UNKNOWN
     Route: 065
  7. CARDIL [Concomitant]
     Dosage: UNK, UNKNOWN
     Route: 065
  8. NORVASC [Concomitant]
     Dosage: UNK, UNKNOWN
     Route: 065
  9. MORPHINE [Concomitant]
     Dosage: UNK, UNKNOWN
     Route: 065

REACTIONS (5)
  - AORTIC CALCIFICATION [None]
  - CONSTIPATION [None]
  - DUODENAL ULCER HAEMORRHAGE [None]
  - INFARCTION [None]
  - VOMITING [None]
